FAERS Safety Report 13946733 (Version 1)
Quarter: 2017Q3

REPORT INFORMATION
  Report Type: Spontaneous
  Country: US (occurrence: US)
  Receive Date: 20170907
  Receipt Date: 20170907
  Transmission Date: 20171128
  Serious: No
  Sender: FDA-Public Use
  Company Number: US-TAKEDA-2014TUS011160

PATIENT
  Age: 62 Year
  Sex: Female
  Weight: 66.67 kg

DRUGS (8)
  1. BRINTELLIX [Suspect]
     Active Substance: VORTIOXETINE HYDROBROMIDE
     Indication: MAJOR DEPRESSION
     Dosage: 20 MG, UNK
     Route: 048
  2. ABILIFY [Suspect]
     Active Substance: ARIPIPRAZOLE
     Dosage: 2 MG, UNK
     Route: 048
  3. LORAZEPAM. [Concomitant]
     Active Substance: LORAZEPAM
     Dosage: 0.5 MG, 1/4 TH TABLET AS NEEDED
  4. ABILIFY [Suspect]
     Active Substance: ARIPIPRAZOLE
     Indication: PRODUCT USED FOR UNKNOWN INDICATION
     Dosage: 2 MG, UNK
     Route: 048
     Dates: start: 201407
  5. NIASPAN [Concomitant]
     Active Substance: NIACIN
     Indication: BLOOD CHOLESTEROL INCREASED
     Dosage: UNK
  6. ABILIFY [Suspect]
     Active Substance: ARIPIPRAZOLE
     Dosage: 2 MG, UNK
     Route: 048
  7. ABILIFY [Suspect]
     Active Substance: ARIPIPRAZOLE
     Dosage: 0.5 DF, UNK
     Route: 048
  8. LAMICTAL [Concomitant]
     Active Substance: LAMOTRIGINE
     Dosage: UNK

REACTIONS (7)
  - Heart rate increased [Recovered/Resolved]
  - Nausea [Recovered/Resolved]
  - Influenza like illness [Not Recovered/Not Resolved]
  - Hyperhidrosis [Recovered/Resolved]
  - Anxiety [Recovered/Resolved]
  - Sinusitis [Not Recovered/Not Resolved]
  - Palpitations [Not Recovered/Not Resolved]

NARRATIVE: CASE EVENT DATE: 201707
